FAERS Safety Report 9108686 (Version 1)
Quarter: 2013Q1

REPORT INFORMATION
  Report Type: Spontaneous
  Country: PL (occurrence: PL)
  Receive Date: 20130222
  Receipt Date: 20130222
  Transmission Date: 20140127
  Serious: Yes (Hospitalization)
  Sender: FDA-Public Use
  Company Number: PL-MYLANLABS-2013S1003148

PATIENT
  Age: 31 Year
  Sex: Female

DRUGS (11)
  1. HYDROXYCARBAMIDE [Suspect]
     Indication: ESSENTIAL THROMBOCYTHAEMIA
     Dosage: 500 MG/DAY
     Route: 048
  2. HYDROXYCARBAMIDE [Suspect]
     Indication: SUICIDE ATTEMPT
     Dosage: 500 MG/DAY
     Route: 048
  3. HYDROXYCARBAMIDE [Suspect]
     Indication: ESSENTIAL THROMBOCYTHAEMIA
     Dosage: 15 X 500MG TABLETS (120 MG/KG)
     Route: 048
  4. HYDROXYCARBAMIDE [Suspect]
     Indication: SUICIDE ATTEMPT
     Dosage: 15 X 500MG TABLETS (120 MG/KG)
     Route: 048
  5. DIAZEPAM TABLETS 5 MG [Suspect]
     Indication: INSOMNIA
     Dosage: 2.5MG TO 5MG BEFORE SLEEP
     Route: 048
  6. DIAZEPAM TABLETS 5 MG [Suspect]
     Indication: SUICIDE ATTEMPT
     Dosage: 2.5MG TO 5MG BEFORE SLEEP
     Route: 048
  7. DIAZEPAM TABLETS 5 MG [Suspect]
     Indication: INSOMNIA
     Dosage: 10 X 5MG TABLETS
     Route: 048
  8. DIAZEPAM TABLETS 5 MG [Suspect]
     Indication: SUICIDE ATTEMPT
     Dosage: 10 X 5MG TABLETS
     Route: 048
  9. PAROXETINE [Suspect]
     Route: 065
  10. ASPIRIN [Concomitant]
     Indication: ESSENTIAL THROMBOCYTHAEMIA
     Dosage: ABOUT 75MG PER DAY
     Route: 065
  11. OMEPRAZOLE [Concomitant]
     Indication: GASTROOESOPHAGEAL REFLUX DISEASE
     Route: 065

REACTIONS (5)
  - Overdose [Recovered/Resolved]
  - Poisoning [Recovering/Resolving]
  - Suicide attempt [Recovered/Resolved]
  - Macrocytosis [Not Recovered/Not Resolved]
  - White blood cell count decreased [Recovered/Resolved]
